FAERS Safety Report 9485999 (Version 1)
Quarter: 2013Q3

REPORT INFORMATION
  Report Type: Spontaneous
  Country: US (occurrence: None)
  Receive Date: 20130823
  Receipt Date: 20130823
  Transmission Date: 20140515
  Serious: Yes (Death)
  Sender: FDA-Public Use
  Company Number: ALK-2013-001891

PATIENT
  Age: 55 Year
  Sex: Female
  Weight: 54 kg

DRUGS (7)
  1. VIVITROL (VIVITROL_NDA) INJECTION, 380 MG [Suspect]
     Indication: ALCOHOLISM
     Route: 030
     Dates: start: 20130402, end: 20130725
  2. ZITHROMAX (AZITHROMYCIN) [Concomitant]
  3. RISPERDAL (RISPERIDONE) [Concomitant]
  4. FLUOXETINE (FLUOXETINE HYDROCHLORIDE) [Concomitant]
  5. OMEPRAZOLE (OMEPRAZOLE) [Concomitant]
  6. METOPROLOL TARTRATE (METOPROLOL TARTRATE) [Concomitant]
  7. FUROSEMIDE (FUROSEMIDE) [Concomitant]

REACTIONS (1)
  - Disease complication [None]
